FAERS Safety Report 16485270 (Version 3)
Quarter: 2019Q3

REPORT INFORMATION
  Report Type: Spontaneous
  Country: JP (occurrence: JP)
  Receive Date: 20190627
  Receipt Date: 20190801
  Transmission Date: 20191004
  Serious: Yes (Death)
  Sender: FDA-Public Use
  Company Number: JP-OTSUKA-2019_024410

PATIENT
  Age: 24 Year
  Sex: Female

DRUGS (8)
  1. BROTIZOLAM [Concomitant]
     Active Substance: BROTIZOLAM
     Indication: PRODUCT USED FOR UNKNOWN INDICATION
     Dosage: 0.25 MG, DAILY DOSE
     Route: 048
     Dates: start: 20150907, end: 20190620
  2. RISPERDAL [Concomitant]
     Active Substance: RISPERIDONE
     Dosage: 1 MG, DAILY DOSE
     Route: 048
     Dates: start: 20190612, end: 20190620
  3. REXULTI [Suspect]
     Active Substance: BREXPIPRAZOLE
     Indication: SCHIZOPHRENIA
     Dosage: 1MG, DAILY DOSE
     Route: 048
     Dates: start: 20190515, end: 20190611
  4. FAMOTIDINE. [Concomitant]
     Active Substance: FAMOTIDINE
     Indication: PRODUCT USED FOR UNKNOWN INDICATION
     Dosage: 20 MG, DAILY DOSE
     Route: 048
     Dates: start: 20140609, end: 20190620
  5. FLUVOXAMINE MALEATE. [Concomitant]
     Active Substance: FLUVOXAMINE MALEATE
     Indication: PRODUCT USED FOR UNKNOWN INDICATION
     Dosage: 150 MG, DAILY DOSE
     Route: 048
     Dates: start: 20161118, end: 20190620
  6. RISPERDAL [Concomitant]
     Active Substance: RISPERIDONE
     Indication: PRODUCT USED FOR UNKNOWN INDICATION
     Dosage: 3 MG, DAILY DOSE
     Route: 048
     Dates: start: 20121207, end: 20190514
  7. REXULTI [Suspect]
     Active Substance: BREXPIPRAZOLE
     Indication: SCHIZOPHRENIA
     Dosage: 2 MG, DAILY DOSE
     Route: 048
     Dates: start: 20190612, end: 20190620
  8. RISPERDAL [Concomitant]
     Active Substance: RISPERIDONE
     Dosage: 2 MG, DAILY DOSE
     Route: 048
     Dates: start: 20190515, end: 20190611

REACTIONS (1)
  - Completed suicide [Fatal]

NARRATIVE: CASE EVENT DATE: 20190620
